FAERS Safety Report 19350080 (Version 2)
Quarter: 2021Q2

REPORT INFORMATION
  Report Type: Spontaneous
  Country: FR (occurrence: FR)
  Receive Date: 20210531
  Receipt Date: 20210618
  Transmission Date: 20210717
  Serious: Yes (Other)
  Sender: FDA-Public Use
  Company Number: FR-JNJFOC-20210557119

PATIENT
  Age: 74 Year
  Sex: Male

DRUGS (7)
  1. RIVAROXABAN [Interacting]
     Active Substance: RIVAROXABAN
     Dosage: 5 MG, QD?XARELTO
     Route: 048
     Dates: start: 202105
  2. RIVAROXABAN [Interacting]
     Active Substance: RIVAROXABAN
     Dosage: 15 MG, QD,?XARELTO 15 MG
     Route: 048
     Dates: start: 2021
  3. RIVAROXABAN [Suspect]
     Active Substance: RIVAROXABAN
     Indication: PULMONARY EMBOLISM
     Dosage: 15 MG, BID,?XARELTO 15 MG
     Route: 048
     Dates: start: 202103
  4. RIVAROXABAN [Interacting]
     Active Substance: RIVAROXABAN
     Dosage: 20 MG, QD?XARELTO 20 MG
     Route: 048
     Dates: start: 2021
  5. RIVAROXABAN [Interacting]
     Active Substance: RIVAROXABAN
     Dosage: 7.5 MG,?XARELTO
     Route: 048
     Dates: start: 202105
  6. SPORANOX [Interacting]
     Active Substance: ITRACONAZOLE
     Indication: ASPERGILLUS INFECTION
     Dosage: UNK
     Route: 065
     Dates: start: 2021
  7. RIVAROXABAN [Interacting]
     Active Substance: RIVAROXABAN
     Dosage: 10 MG, QD?XARELTO 10 MG
     Route: 048
     Dates: start: 202105

REACTIONS (7)
  - Epistaxis [Not Recovered/Not Resolved]
  - Bronchopulmonary aspergillosis [Unknown]
  - Labelled drug-drug interaction medication error [Unknown]
  - Off label use [Unknown]
  - Haemoptysis [Unknown]
  - Oedema peripheral [Recovering/Resolving]
  - Contraindicated product administered [Unknown]

NARRATIVE: CASE EVENT DATE: 2021
